FAERS Safety Report 15005597 (Version 1)
Quarter: 2018Q2

REPORT INFORMATION
  Report Type: Spontaneous
  Country: GB (occurrence: GB)
  Receive Date: 20180613
  Receipt Date: 20180613
  Transmission Date: 20180711
  Serious: Yes (Life-Threatening, Hospitalization)
  Sender: FDA-Public Use
  Company Number: GB-PFIZER INC-2018238715

PATIENT
  Age: 51 Year
  Sex: Male
  Weight: 95 kg

DRUGS (4)
  1. ELTROMBOPAG [Concomitant]
     Active Substance: ELTROMBOPAG
     Dosage: UNK
  2. CICLOSPORIN [Concomitant]
     Active Substance: CYCLOSPORINE
     Dosage: UNK
  3. MEROPENEM TRIHYDRATE [Concomitant]
     Active Substance: MEROPENEM
     Dosage: UNK
  4. LINEZOLID. [Suspect]
     Active Substance: LINEZOLID
     Indication: INTERVERTEBRAL DISCITIS
     Dosage: 1200 MG, 1X/DAY
     Route: 048
     Dates: start: 20171228, end: 20180313

REACTIONS (4)
  - Loss of consciousness [Unknown]
  - Lactic acidosis [Recovered/Resolved]
  - Confusional state [Unknown]
  - Tachypnoea [Unknown]

NARRATIVE: CASE EVENT DATE: 20180301
